FAERS Safety Report 24653416 (Version 1)
Quarter: 2024Q4

REPORT INFORMATION
  Report Type: Spontaneous
  Country: JP (occurrence: JP)
  Receive Date: 20241122
  Receipt Date: 20241122
  Transmission Date: 20250115
  Serious: Yes (Hospitalization, Other)
  Sender: PFIZER
  Company Number: JP-PFIZER INC-PV202400150101

PATIENT
  Age: 2 Decade
  Sex: Male

DRUGS (1)
  1. METHOTREXATE SODIUM [Suspect]
     Active Substance: METHOTREXATE SODIUM
     Indication: Acute leukaemia
     Dosage: HIGH-DOSE, INTO THE SPINAL COLUMN

REACTIONS (1)
  - Leukoencephalopathy [Recovering/Resolving]
